FAERS Safety Report 4870639-8 (Version None)
Quarter: 2005Q4

REPORT INFORMATION
  Report Type: 
  Country: None (occurrence: None)
  Receive Date: 20051228
  Receipt Date: 20050930
  Transmission Date: 20060501
  Serious: Yes (Hospitalization)
  Sender: FDA-Public Use
  Company Number: 2005VX000559

PATIENT
  Age: 85 Year
  Sex: Female

DRUGS (3)
  1. EFUDEX [Suspect]
     Indication: BASAL CELL CARCINOMA
     Dosage: BID; TOP
     Route: 061
  2. ISOSORBIDE DINITRATE [Concomitant]
  3. DILTIAZEM HCL [Concomitant]

REACTIONS (1)
  - MYOCARDIAL ISCHAEMIA [None]
